FAERS Safety Report 11248892 (Version 1)
Quarter: 2015Q2

REPORT INFORMATION
  Report Type: Spontaneous
  Country: US (occurrence: None)
  Receive Date: 20150630
  Receipt Date: 20150630
  Transmission Date: 20150821
  Serious: Yes (Life-Threatening, Hospitalization, Disabling, Other)
  Sender: FDA-Public Use
  Company Number: 003-289

PATIENT
  Age: 8 Year
  Sex: Male

DRUGS (1)
  1. CROFAB [Suspect]
     Active Substance: CROTALIDAE POLYVALENT IMMUNE FAB (OVINE)
     Indication: SNAKE BITE
     Dosage: STOPPED

REACTIONS (28)
  - Coagulopathy [None]
  - Renal failure [None]
  - PCO2 increased [None]
  - Diplegia [None]
  - Paralysis [None]
  - Areflexia [None]
  - Neuromuscular blockade [None]
  - Acid base balance abnormal [None]
  - Calcium ionised decreased [None]
  - Rhabdomyolysis [None]
  - Cyanosis [None]
  - Local swelling [None]
  - Heart rate decreased [None]
  - Haemorrhage [None]
  - Procedural complication [None]
  - Mydriasis [None]
  - Muscular weakness [None]
  - Transaminases increased [None]
  - Neurotoxicity [None]
  - Erythema [None]
  - Ophthalmoplegia [None]
  - Blood pressure systolic decreased [None]
  - Blood pH decreased [None]
  - Hypotension [None]
  - Cough [None]
  - Eyelid oedema [None]
  - Oxygen saturation abnormal [None]
  - Hyperaesthesia [None]
